FAERS Safety Report 20649567 (Version 6)
Quarter: 2022Q3

REPORT INFORMATION
  Report Type: Report from Study
  Country: JP (occurrence: JP)
  Receive Date: 20220329
  Receipt Date: 20220729
  Transmission Date: 20221027
  Serious: Yes (Hospitalization)
  Sender: FDA-Public Use
  Company Number: JP-OTSUKA-2022_016880

PATIENT
  Age: 4 Decade
  Sex: Female

DRUGS (11)
  1. ARIPIPRAZOLE [Suspect]
     Active Substance: ARIPIPRAZOLE
     Indication: Bipolar I disorder
     Dosage: 300 MG/SHOT
     Route: 030
     Dates: start: 20220105, end: 20220105
  2. ARIPIPRAZOLE [Suspect]
     Active Substance: ARIPIPRAZOLE
     Dosage: 300 MG/SHOT
     Route: 030
     Dates: start: 20210616, end: 20210616
  3. ARIPIPRAZOLE [Suspect]
     Active Substance: ARIPIPRAZOLE
     Dosage: 300 MG/SHOT
     Route: 030
     Dates: start: 20210714, end: 20210714
  4. ARIPIPRAZOLE [Suspect]
     Active Substance: ARIPIPRAZOLE
     Dosage: 300 MG/SHOT
     Route: 030
     Dates: start: 20210811, end: 20210811
  5. ARIPIPRAZOLE [Suspect]
     Active Substance: ARIPIPRAZOLE
     Dosage: 300 MG/SHOT
     Route: 030
     Dates: start: 20210915, end: 20210915
  6. ARIPIPRAZOLE [Suspect]
     Active Substance: ARIPIPRAZOLE
     Dosage: 300 MG/SHOT
     Route: 030
     Dates: start: 20211013, end: 20211013
  7. ARIPIPRAZOLE [Suspect]
     Active Substance: ARIPIPRAZOLE
     Dosage: 300 MG/SHOT
     Route: 030
     Dates: start: 20211110, end: 20211110
  8. ARIPIPRAZOLE [Suspect]
     Active Substance: ARIPIPRAZOLE
     Dosage: 300 MG/SHOT
     Route: 030
     Dates: start: 20211208, end: 20211208
  9. ABILIFY [Concomitant]
     Active Substance: ARIPIPRAZOLE
     Indication: Bipolar I disorder
     Dosage: 18 MG/DAY
     Route: 048
     Dates: end: 20210615
  10. ABILIFY [Concomitant]
     Active Substance: ARIPIPRAZOLE
     Dosage: 12 MG/DAY
     Route: 048
     Dates: start: 20210616, end: 20210629
  11. LORAZEPAM [Concomitant]
     Active Substance: LORAZEPAM
     Indication: Product used for unknown indication
     Dosage: 1.5 MG/DAY
     Route: 048

REACTIONS (3)
  - Gestational diabetes [Recovering/Resolving]
  - Condition aggravated [Unknown]
  - Maternal exposure during pregnancy [Unknown]

NARRATIVE: CASE EVENT DATE: 20220108
